FAERS Safety Report 7589913-X (Version None)
Quarter: 2011Q3

REPORT INFORMATION
  Report Type: 
  Country: None (occurrence: None)
  Receive Date: 20110705
  Receipt Date: 20110620
  Transmission Date: 20111222
  Serious: Yes (Death, Other)
  Sender: FDA-Public Use
  Company Number: JP-PFIZER INC-2011093987

PATIENT
  Age: 73 Year
  Sex: Female
  Weight: 62 kg

DRUGS (16)
  1. CAMPTOSAR [Suspect]
     Dosage: 140 MG/BODY (93.3 MG/M2)
     Route: 041
     Dates: start: 20110408, end: 20110408
  2. PANITUMUMAB [Suspect]
     Dosage: 360 MG/BODY
     Route: 041
     Dates: start: 20110408, end: 20110408
  3. SOLU-CORTEF [Concomitant]
     Dosage: 200 MG, UNK
     Route: 041
     Dates: start: 20110420, end: 20110420
  4. PANITUMUMAB [Suspect]
     Indication: COLON CANCER
     Dosage: 370 MG/BODY (246.7 MG/M2)
     Route: 041
     Dates: start: 20110128, end: 20110325
  5. MORPHINE HYDROCHLORIDE [Concomitant]
     Dosage: UNK
     Route: 041
     Dates: start: 20110420, end: 20110420
  6. CAMPTOSAR [Suspect]
     Indication: COLON CANCER
     Dosage: 180 MG/BODY (120 MG/M2)
     Route: 041
     Dates: start: 20101202, end: 20110311
  7. LEUCOVORIN CALCIUM [Suspect]
     Dosage: 300 MG/BODY (200 MG/M2)
     Route: 041
     Dates: start: 20110408, end: 20110408
  8. FLUMARIN [Concomitant]
     Dosage: UNK
     Route: 041
     Dates: start: 20110419, end: 20110420
  9. INOVAN [Concomitant]
     Dosage: UNK
     Route: 041
     Dates: start: 20110420, end: 20110420
  10. LASIX [Concomitant]
     Dosage: 2 DF, 1X/DAY
     Route: 041
     Dates: start: 20110420, end: 20110420
  11. LEUCOVORIN CALCIUM [Suspect]
     Indication: COLON CANCER
     Dosage: 250 MG/BODY (166.7MG/M2)
     Route: 041
     Dates: start: 20101202, end: 20110311
  12. FLUOROURACIL [Suspect]
     Dosage: 2250MG/BODY/D1-2 (1500 MG/M2/D1-2)
     Route: 041
     Dates: start: 20110408, end: 20110408
  13. FLUOROURACIL [Suspect]
     Indication: COLON CANCER
     Dosage: 3000 MG/BODY/D1-2 (2000 MG/M2/D1-2)
     Route: 041
     Dates: start: 20101202, end: 20110311
  14. MEROPENEM [Concomitant]
     Dosage: 0.5 G, UNK
     Route: 041
     Dates: start: 20110420, end: 20110420
  15. NEUTROGIN [Concomitant]
     Dosage: 250 UG, UNK
     Route: 041
     Dates: start: 20110420, end: 20110420
  16. DOBUPUM [Concomitant]
     Dosage: UNK
     Route: 041
     Dates: start: 20110420, end: 20110420

REACTIONS (6)
  - FEBRILE NEUTROPENIA [None]
  - MULTI-ORGAN FAILURE [None]
  - PNEUMONIA [None]
  - HYDRONEPHROSIS [None]
  - LEUKOPENIA [None]
  - NEUTROPENIA [None]
